FAERS Safety Report 25699903 (Version 2)
Quarter: 2025Q3

REPORT INFORMATION
  Report Type: Report from Study
  Country: US (occurrence: US)
  Receive Date: 20250819
  Receipt Date: 20250923
  Transmission Date: 20251021
  Serious: Yes (Hospitalization, Other)
  Sender: UCB
  Company Number: US-UCBSA-2025051190

PATIENT
  Sex: Male

DRUGS (1)
  1. BIMEKIZUMAB [Suspect]
     Active Substance: BIMEKIZUMAB
     Indication: Hidradenitis
     Dosage: 320 MILLIGRAM, EV 2 WEEKS(QOW)
     Route: 058
     Dates: start: 20250317, end: 2025

REACTIONS (4)
  - Wound [Recovering/Resolving]
  - Sepsis [Recovering/Resolving]
  - Surgery [Recovered/Resolved]
  - Wound drainage [Not Recovered/Not Resolved]

NARRATIVE: CASE EVENT DATE: 20250101
